FAERS Safety Report 13150500 (Version 4)
Quarter: 2017Q4

REPORT INFORMATION
  Report Type: Spontaneous
  Country: US (occurrence: US)
  Receive Date: 20170125
  Receipt Date: 20171218
  Transmission Date: 20180320
  Serious: Yes (Other)
  Sender: FDA-Public Use
  Company Number: US-PFIZER INC-2017032476

PATIENT
  Age: 56 Year
  Sex: Female
  Weight: 88 kg

DRUGS (4)
  1. FENTANYL. [Concomitant]
     Active Substance: FENTANYL
     Indication: ANXIOLYTIC THERAPY
     Dosage: 100 UG, UNK
     Route: 042
  2. LIDOCAINE. [Concomitant]
     Active Substance: LIDOCAINE
     Route: 058
  3. EPINEPHRINE/LIDOCAINE HYDROCHLORIDE [Suspect]
     Active Substance: EPINEPHRINE\LIDOCAINE HYDROCHLORIDE
     Dosage: 3 ML OF 1.5% LIDOCAINE WITH EPINEPHRINE 1:200,000
  4. MIDAZOLAM [Concomitant]
     Active Substance: MIDAZOLAM HYDROCHLORIDE
     Indication: ANXIOLYTIC THERAPY
     Dosage: 2 MG, UNK
     Route: 042

REACTIONS (5)
  - Injection site extravasation [Unknown]
  - Hypotension [Recovered/Resolved]
  - Sensory loss [Recovered/Resolved]
  - Nausea [Unknown]
  - Motor dysfunction [Recovered/Resolved]
